FAERS Safety Report 7595392-9 (Version None)
Quarter: 2011Q2

REPORT INFORMATION
  Report Type: 
  Country: None (occurrence: None)
  Receive Date: 20110620
  Receipt Date: 20110504
  Transmission Date: 20111010
  Serious: Yes (Hospitalization)
  Sender: FDA-Public Use
  Company Number: UTC-006857

PATIENT
  Age: 55 Year
  Sex: Female

DRUGS (4)
  1. DIURETICS (DIURETICS) [Concomitant]
  2. ADCIRCA [Concomitant]
  3. COUMADIN [Concomitant]
  4. TYVASO [Suspect]
     Indication: PULMONARY ARTERIAL HYPERTENSION
     Dosage: 18 TO 54 IMCROGRAMS/TREATMENT (4 IN 1 D), INHALATION
     Route: 055
     Dates: start: 20100128

REACTIONS (1)
  - ATRIAL FIBRILLATION [None]
